FAERS Safety Report 6712379-6 (Version None)
Quarter: 2010Q2

REPORT INFORMATION
  Report Type: 
  Country: None (occurrence: None)
  Receive Date: 20100505
  Receipt Date: 20100423
  Transmission Date: 20101027
  Serious: Yes (Hospitalization)
  Sender: FDA-Public Use
  Company Number: US-ROCHE-687860

PATIENT
  Sex: Female
  Weight: 95.3 kg

DRUGS (9)
  1. PEGINTERFERON ALFA-2A [Suspect]
     Indication: HEPATITIS C
     Route: 058
     Dates: start: 20090917
  2. PEGINTERFERON ALFA-2A [Suspect]
     Route: 058
     Dates: start: 20091221, end: 20100119
  3. RIBAVIRIN [Suspect]
     Indication: HEPATITIS C
     Route: 048
     Dates: start: 20090917
  4. RIBAVIRIN [Suspect]
     Route: 048
     Dates: start: 20091221, end: 20100119
  5. PRILOSEC [Concomitant]
     Dosage: DOSE: OTC FREQUENCY: DAY
     Route: 048
     Dates: start: 20090501
  6. LASIX [Concomitant]
     Route: 048
     Dates: start: 20091101
  7. K+ [Concomitant]
     Dosage: FREQUENCY: DAY
     Route: 048
     Dates: start: 20091101
  8. COMBIVENT [Concomitant]
  9. ALBUTEROL [Concomitant]

REACTIONS (2)
  - NEUTROPENIA [None]
  - PNEUMONIA ASPIRATION [None]
